FAERS Safety Report 6071660-7 (Version None)
Quarter: 2009Q1

REPORT INFORMATION
  Report Type: 
  Country: None (occurrence: None)
  Receive Date: 20090209
  Receipt Date: 20090209
  Transmission Date: 20090719
  Serious: No
  Sender: FDA-Public Use
  Company Number: None

PATIENT

DRUGS (1)
  1. ZYPREXA [Suspect]
     Dosage: (1) TABLET AT BED TIME (JHC) QH 30
     Dates: start: 19890101, end: 20090101

REACTIONS (2)
  - GASTRIC DISORDER [None]
  - NAUSEA [None]
